FAERS Safety Report 20776987 (Version 1)
Quarter: 2022Q2

REPORT INFORMATION
  Report Type: Report from Study
  Country: US (occurrence: US)
  Receive Date: 20220502
  Receipt Date: 20220502
  Transmission Date: 20220720
  Serious: Yes (Hospitalization)
  Sender: FDA-Public Use
  Company Number: US-ABBVIE-22K-163-4376467-00

PATIENT
  Age: 72 Year
  Sex: Male

DRUGS (2)
  1. DUOPA [Suspect]
     Active Substance: CARBIDOPA\LEVODOPA
     Indication: Product used for unknown indication
     Route: 050
     Dates: start: 20170627
  2. DUOPA [Suspect]
     Active Substance: CARBIDOPA\LEVODOPA

REACTIONS (15)
  - Urinary tract infection [Unknown]
  - Intestinal obstruction [Unknown]
  - Wheelchair user [Unknown]
  - Illness [Unknown]
  - Hypophagia [Unknown]
  - Clostridium difficile infection [Unknown]
  - Feeding tube user [Unknown]
  - Weight decreased [Unknown]
  - Stoma site oedema [Unknown]
  - Dyskinesia [Unknown]
  - Stoma site reaction [Unknown]
  - Stoma site haemorrhage [Unknown]
  - Hallucination [Unknown]
  - Flatulence [Unknown]
  - Stoma complication [Unknown]

NARRATIVE: CASE EVENT DATE: 20220426
